FAERS Safety Report 12091324 (Version 2)
Quarter: 2016Q1

REPORT INFORMATION
  Report Type: Spontaneous
  Country: CH (occurrence: CH)
  Receive Date: 20160218
  Receipt Date: 20160229
  Transmission Date: 20160526
  Serious: Yes (Other)
  Sender: FDA-Public Use
  Company Number: CH-BAYER-2016-030617

PATIENT
  Sex: Male

DRUGS (8)
  1. XOFIGO [Suspect]
     Active Substance: RADIUM RA-223 DICHLORIDE
  2. TAMSULOSIN [Concomitant]
     Active Substance: TAMSULOSIN
     Dosage: 0.4 MG 0 0 1 0
  3. IRENAT [Concomitant]
     Active Substance: POTASSIUM PERCHLORATE
     Dosage: UNK
     Dates: start: 20160122, end: 20160128
  4. DAFALGAN [Concomitant]
     Active Substance: ACETAMINOPHEN
     Dosage: TABL 1 G ? ? ? 0 AS NEEDED
  5. CONCOR [BISOPROLOL FUMARATE] [Concomitant]
     Dosage: TABL 5 MG 0 0 0 ?
  6. XGEVA [Concomitant]
     Active Substance: DENOSUMAB
     Dosage: INJ SOLUTION 120 MG / 1.7ML 1 0 0 0, EVERY 4 WEEKS
     Dates: start: 20140711, end: 20151217
  7. CALCIUM D3 [CALCIUM,COLECALCIFEROL] [Concomitant]
     Dosage: TABLETS 500/440
  8. ZOLADEX LA [Concomitant]
     Active Substance: GOSERELIN ACETATE
     Dosage: 10.8 MG
     Dates: start: 20140121, end: 20151123

REACTIONS (1)
  - Presbyacusis [Unknown]
